FAERS Safety Report 8980031 (Version 1)
Quarter: 2012Q4

REPORT INFORMATION
  Report Type: 
  Country: US (occurrence: US)
  Receive Date: 20121221
  Receipt Date: 20121221
  Transmission Date: 20130627
  Serious: Yes (Other)
  Sender: FDA-Public Use
  Company Number: PHHY2012US118142

PATIENT
  Age: 71 Year
  Sex: Female

DRUGS (2)
  1. BUFFERIN EXTRA STRENGTH [Suspect]
     Indication: HEADACHE
     Dosage: 2 DF, when needed
     Route: 048
  2. ASPIRIN [Concomitant]
     Dosage: 81 mg, daily

REACTIONS (3)
  - Lung neoplasm malignant [Recovered/Resolved]
  - Glaucoma [Recovering/Resolving]
  - Incorrect drug administration duration [Unknown]
